FAERS Safety Report 16290575 (Version 2)
Quarter: 2019Q2

REPORT INFORMATION
  Report Type: Spontaneous
  Country: AU (occurrence: AU)
  Receive Date: 20190509
  Receipt Date: 20190510
  Transmission Date: 20190711
  Serious: Yes (Hospitalization)
  Sender: FDA-Public Use
  Company Number: AU-JNJFOC-20190503682

PATIENT
  Sex: Male

DRUGS (1)
  1. INVEGA SUSTENNA [Suspect]
     Active Substance: PALIPERIDONE PALMITATE
     Indication: PRODUCT USED FOR UNKNOWN INDICATION
     Route: 030

REACTIONS (3)
  - Flat affect [Unknown]
  - Inappropriate schedule of product administration [Unknown]
  - Off label use [Unknown]
